FAERS Safety Report 25778303 (Version 1)
Quarter: 2025Q3

REPORT INFORMATION
  Report Type: Spontaneous
  Country: US (occurrence: US)
  Receive Date: 20250909
  Receipt Date: 20250909
  Transmission Date: 20251021
  Serious: Yes (Other)
  Sender: CENTRAL ADMIXTURE PHARMACY SERVICES, INC
  Company Number: US-Central Admixture Pharmacy Services, Inc. - Phoenix-2184133

PATIENT

DRUGS (1)
  1. DEL NIDO FORMULA (ISOLYTE S, PH 7.4) [Suspect]
     Active Substance: LIDOCAINE HYDROCHLORIDE\MAGNESIUM CHLORIDE\MAGNESIUM SULFATE\MANNITOL\POTASSIUM CHLORIDE\POTASSIUM P
     Indication: Cardiac operation

REACTIONS (1)
  - Drug ineffective [Unknown]
